FAERS Safety Report 13138182 (Version 1)
Quarter: 2017Q1

REPORT INFORMATION
  Report Type: Spontaneous
  Country: US (occurrence: US)
  Receive Date: 20170123
  Receipt Date: 20170123
  Transmission Date: 20170428
  Serious: Yes (Hospitalization)
  Sender: FDA-Public Use
  Company Number: US-UNITED THERAPEUTICS-UNT-2016-011206

PATIENT
  Sex: Male

DRUGS (1)
  1. REMODULIN [Suspect]
     Active Substance: TREPROSTINIL
     Indication: PULMONARY ARTERIAL HYPERTENSION
     Dosage: 0.141 ?G/KG, CONTINUING
     Route: 041
     Dates: start: 20140601

REACTIONS (4)
  - Generalised oedema [Unknown]
  - Nausea [Unknown]
  - Abdominal pain [Unknown]
  - Ascites [Unknown]

NARRATIVE: CASE EVENT DATE: 20160711
